FAERS Safety Report 4298071-9 (Version None)
Quarter: 2004Q1

REPORT INFORMATION
  Report Type: 
  Country: None (occurrence: None)
  Receive Date: 20040218
  Receipt Date: 20020418
  Transmission Date: 20041129
  Serious: Yes (Other)
  Sender: FDA-Public Use
  Company Number: US-BRISTOL-MYERS SQUIBB COMPANY-11834298

PATIENT
  Age: 42 Year
  Sex: Male

DRUGS (1)
  1. STADOL [Suspect]
     Route: 045
     Dates: start: 19920630, end: 19940412

REACTIONS (3)
  - DEPENDENCE [None]
  - DRUG ADDICT [None]
  - TREMOR [None]
